FAERS Safety Report 22625173 (Version 1)
Quarter: 2023Q2

REPORT INFORMATION
  Report Type: Spontaneous
  Country: US (occurrence: None)
  Receive Date: 20230616
  Receipt Date: 20230616
  Transmission Date: 20230722
  Serious: No
  Sender: FDA-Public Use
  Company Number: None

PATIENT
  Sex: Female

DRUGS (1)
  1. TASIMELTEON [Suspect]
     Active Substance: TASIMELTEON
     Indication: Circadian rhythm sleep disorder
     Dosage: 20MG DAILY ORAL
     Route: 048
     Dates: start: 202305

REACTIONS (1)
  - Drug ineffective [None]
